FAERS Safety Report 16920965 (Version 4)
Quarter: 2020Q1

REPORT INFORMATION
  Report Type: Report from Study
  Country: US (occurrence: US)
  Receive Date: 20191015
  Receipt Date: 20200326
  Transmission Date: 20200409
  Serious: Yes (Hospitalization, Other)
  Sender: FDA-Public Use
  Company Number: PHHY2019US218387

PATIENT
  Age: 70 Year
  Sex: Male
  Weight: 70 kg

DRUGS (7)
  1. DOXYCYCLINE. [Concomitant]
     Active Substance: DOXYCYCLINE
     Indication: PRODUCT USED FOR UNKNOWN INDICATION
     Dosage: 100 MG, QD
     Route: 065
  2. FUROSEMIDE. [Concomitant]
     Active Substance: FUROSEMIDE
     Indication: PRODUCT USED FOR UNKNOWN INDICATION
     Dosage: 20 MG, QD
     Route: 065
  3. AZITHROMYCIN ANHYDROUS. [Concomitant]
     Active Substance: AZITHROMYCIN ANHYDROUS
     Indication: HAEMOPHILUS INFECTION
     Dosage: 250 MG, QD
     Route: 065
  4. ACYCLOVIR. [Concomitant]
     Active Substance: ACYCLOVIR
     Indication: PRODUCT USED FOR UNKNOWN INDICATION
     Dosage: 400 MG, QD
     Route: 065
  5. VENETOCLAX. [Concomitant]
     Active Substance: VENETOCLAX
     Indication: CHRONIC LYMPHOCYTIC LEUKAEMIA
     Dosage: 10 MG, QD
     Route: 065
  6. LAMPRENE [Suspect]
     Active Substance: CLOFAZIMINE
     Indication: MYCOBACTERIAL INFECTION
     Dosage: 100 MG, QD (50 MG TWICE DAILY)
     Route: 048
     Dates: start: 20151010, end: 20190924
  7. LAMPRENE [Suspect]
     Active Substance: CLOFAZIMINE
     Dosage: 100 MG, QD
     Route: 048
     Dates: start: 20191108, end: 20191218

REACTIONS (12)
  - Chronic lymphocytic leukaemia [Recovered/Resolved]
  - Electrocardiogram QT prolonged [Not Recovered/Not Resolved]
  - Brain natriuretic peptide increased [Unknown]
  - Cough [Unknown]
  - Dyspnoea [Unknown]
  - Cardiac failure congestive [Recovered/Resolved]
  - Concomitant disease aggravated [Recovered/Resolved]
  - Febrile neutropenia [Not Recovered/Not Resolved]
  - Electrocardiogram QT prolonged [Recovered/Resolved]
  - Chest pain [Unknown]
  - Nodal rhythm [Unknown]
  - Troponin I increased [Unknown]

NARRATIVE: CASE EVENT DATE: 20190913
